FAERS Safety Report 10308557 (Version 2)
Quarter: 2014Q3

REPORT INFORMATION
  Report Type: Spontaneous
  Country: JP (occurrence: JP)
  Receive Date: 20140716
  Receipt Date: 20140728
  Transmission Date: 20150326
  Serious: Yes (Hospitalization)
  Sender: FDA-Public Use
  Company Number: PHHY2014JP086057

PATIENT
  Age: 69 Year
  Sex: Male

DRUGS (9)
  1. PREDNISOLONE. [Suspect]
     Active Substance: PREDNISOLONE
     Dosage: 27.5 MG DAILY
     Dates: start: 201111
  2. FLUCYTOSINE. [Concomitant]
     Active Substance: FLUCYTOSINE
     Indication: PNEUMONIA CRYPTOCOCCAL
     Dosage: UNK UKN, UNK
  3. FLUCONAZOL [Concomitant]
     Active Substance: FLUCONAZOLE
     Dosage: 400 MG DAILY
     Dates: start: 20120509
  4. PREDNISOLONE. [Suspect]
     Active Substance: PREDNISOLONE
     Dosage: 20 MG DAILY
  5. FLUCONAZOL [Concomitant]
     Active Substance: FLUCONAZOLE
     Indication: PNEUMONIA CRYPTOCOCCAL
     Dosage: 400 MG FOR 8 WEEKS
  6. FLUCONAZOL [Concomitant]
     Active Substance: FLUCONAZOLE
     Dosage: 200 MG
  7. FLUCONAZOL [Concomitant]
     Active Substance: FLUCONAZOLE
     Dosage: 400 MG
  8. AMPHOTERICIN B. [Concomitant]
     Active Substance: AMPHOTERICIN B
     Indication: PNEUMONIA CRYPTOCOCCAL
     Dosage: 175 MG DAILY
     Dates: end: 20140509
  9. PREDNISOLONE. [Suspect]
     Active Substance: PREDNISOLONE
     Indication: SYSTEMIC LUPUS ERYTHEMATOSUS
     Dosage: 50 MG DAILY

REACTIONS (25)
  - Iron deficiency anaemia [Recovered/Resolved]
  - Hypoproteinaemia [Recovered/Resolved]
  - Blood albumin decreased [Recovered/Resolved]
  - Lung infiltration [Recovered/Resolved]
  - Renal impairment [Recovered/Resolved]
  - Hypogammaglobulinaemia [Recovered/Resolved]
  - Pyrexia [Recovered/Resolved]
  - Pulmonary valve stenosis [Recovered/Resolved]
  - Leukocytosis [Recovered/Resolved]
  - Brain neoplasm [Recovered/Resolved]
  - Lung infection [Recovered/Resolved]
  - Headache [Recovered/Resolved]
  - Brain abscess [Recovered/Resolved]
  - Red blood cell sedimentation rate increased [Recovered/Resolved]
  - Atelectasis [Recovered/Resolved]
  - Nocardiosis [Recovered/Resolved]
  - Muscular weakness [Recovered/Resolved]
  - Pneumonia [Recovered/Resolved]
  - Vomiting [Recovered/Resolved]
  - Abdominal distension [Recovered/Resolved]
  - Inflammation [Recovered/Resolved]
  - C-reactive protein increased [Recovered/Resolved]
  - Muscle atrophy [Recovered/Resolved]
  - Microcytic anaemia [Recovered/Resolved]
  - Oedema mucosal [Recovered/Resolved]

NARRATIVE: CASE EVENT DATE: 201111
